FAERS Safety Report 6570163-0 (Version None)
Quarter: 2010Q1

REPORT INFORMATION
  Report Type: 
  Country: None (occurrence: None)
  Receive Date: 20100202
  Receipt Date: 20100202
  Transmission Date: 20100710
  Serious: Yes (Hospitalization)
  Sender: FDA-Public Use
  Company Number: None

PATIENT
  Age: 79 Year
  Sex: Female
  Weight: 58.9676 kg

DRUGS (1)
  1. POTASSIUM CHLORIDE [Suspect]
     Indication: HYPOKALAEMIA
     Dosage: 10 MEQ/ 100ML ONE TIME IV DRIP GIVEN AND RECHALENGED
     Route: 041
     Dates: start: 20100104, end: 20100104

REACTIONS (2)
  - BURNING SENSATION [None]
  - PAIN IN EXTREMITY [None]
